FAERS Safety Report 4565610-X (Version None)
Quarter: 2005Q1

REPORT INFORMATION
  Report Type: 
  Country: None (occurrence: None)
  Receive Date: 20050126
  Receipt Date: 20050110
  Transmission Date: 20050727
  Serious: Yes (Hospitalization, Disabling, Other)
  Sender: FDA-Public Use
  Company Number: USA050187960

PATIENT
  Age: 76 Year
  Sex: Female

DRUGS (4)
  1. HUMALOG [Suspect]
     Dates: start: 19950101, end: 20040301
  2. HUMULIN 70/30 [Suspect]
     Dates: start: 19910101, end: 20040301
  3. HUMULIN N [Suspect]
     Dates: start: 19950101, end: 20040301
  4. PLAVIX [Concomitant]

REACTIONS (13)
  - ANGIOPATHY [None]
  - BALANCE DISORDER [None]
  - BLOOD GLUCOSE DECREASED [None]
  - CEREBRAL ARTERY OCCLUSION [None]
  - CEREBROVASCULAR ACCIDENT [None]
  - CLOSTRIDIUM COLITIS [None]
  - ENTEROCOCCAL INFECTION [None]
  - ESCHERICHIA URINARY TRACT INFECTION [None]
  - INCONTINENCE [None]
  - PSEUDOMONAS INFECTION [None]
  - SEPSIS [None]
  - STAPHYLOCOCCAL INFECTION [None]
  - TRANSIENT ISCHAEMIC ATTACK [None]
